FAERS Safety Report 7693700-1 (Version None)
Quarter: 2011Q3

REPORT INFORMATION
  Report Type: 
  Country: None (occurrence: None)
  Receive Date: 20110819
  Receipt Date: 20110812
  Transmission Date: 20111222
  Serious: Yes (Other)
  Sender: FDA-Public Use
  Company Number: AU-JNJFOC-20110807673

PATIENT
  Sex: Female

DRUGS (3)
  1. PANADOL OSTEO [Concomitant]
     Indication: MIGRAINE
  2. IBUPROFEN [Concomitant]
     Indication: MIGRAINE
     Route: 065
  3. TOPAMAX [Suspect]
     Indication: MIGRAINE PROPHYLAXIS
     Route: 048
     Dates: start: 20110801, end: 20110801

REACTIONS (1)
  - PARALYSIS [None]
